FAERS Safety Report 15376363 (Version 3)
Quarter: 2019Q3

REPORT INFORMATION
  Report Type: Spontaneous
  Country: BR (occurrence: BR)
  Receive Date: 20180912
  Receipt Date: 20190904
  Transmission Date: 20191004
  Serious: Yes (Life-Threatening, Other)
  Sender: FDA-Public Use
  Company Number: BR-GE HEALTHCARE LIFE SCIENCES-2018CSU002985

PATIENT

DRUGS (1)
  1. OMNIPAQUE [Suspect]
     Active Substance: IOHEXOL
     Indication: CANCER STAGING
     Dosage: 80 ML, SINGLE
     Route: 042
     Dates: start: 20180730, end: 20180730

REACTIONS (2)
  - Product administration error [Recovered/Resolved]
  - Intravascular gas [Recovered/Resolved]

NARRATIVE: CASE EVENT DATE: 20180730
